FAERS Safety Report 11188379 (Version 1)
Quarter: 2015Q2

REPORT INFORMATION
  Report Type: Spontaneous
  Country: US (occurrence: US)
  Receive Date: 20150615
  Receipt Date: 20150615
  Transmission Date: 20150821
  Serious: No
  Sender: FDA-Public Use
  Company Number: US-JNJFOC-20150600051

PATIENT
  Age: 29 Year
  Sex: Female

DRUGS (1)
  1. SIMPONI [Suspect]
     Active Substance: GOLIMUMAB
     Indication: RHEUMATOID ARTHRITIS
     Dosage: 50 MG SUBCUTANEOUSLY AS DIRECTED FOR 30 DAYS.
     Route: 058
     Dates: start: 20140804

REACTIONS (3)
  - Therapeutic response decreased [Unknown]
  - Peripheral swelling [Unknown]
  - Rheumatoid arthritis [Unknown]

NARRATIVE: CASE EVENT DATE: 20150526
